FAERS Safety Report 17172117 (Version 1)
Quarter: 2019Q4

REPORT INFORMATION
  Report Type: Spontaneous
  Country: US (occurrence: US)
  Receive Date: 20191218
  Receipt Date: 20191218
  Transmission Date: 20200122
  Serious: No
  Sender: FDA-Public Use
  Company Number: US-AMAG PHARMACEUTICALS, INC.-AMAG201906317

PATIENT
  Age: 67 Year
  Sex: Female
  Weight: 56.3 kg

DRUGS (1)
  1. INTRAROSA [Suspect]
     Active Substance: PRASTERONE
     Indication: PRODUCT USED FOR UNKNOWN INDICATION
     Route: 067
     Dates: start: 20191028, end: 20191128

REACTIONS (1)
  - Application site discharge [Unknown]

NARRATIVE: CASE EVENT DATE: 20191027
